FAERS Safety Report 5557076-8 (Version None)
Quarter: 2007Q4

REPORT INFORMATION
  Report Type: 
  Country: None (occurrence: None)
  Receive Date: 20071214
  Receipt Date: 20071205
  Transmission Date: 20080405
  Serious: Yes (Hospitalization)
  Sender: FDA-Public Use
  Company Number: JP-JNJFOC-20071202466

PATIENT
  Age: 60 Year
  Sex: Female

DRUGS (7)
  1. REMICADE [Suspect]
     Route: 042
  2. REMICADE [Suspect]
     Route: 042
  3. REMICADE [Suspect]
     Indication: CROHN'S DISEASE
     Route: 042
  4. LASIX [Concomitant]
     Indication: ASCITES
  5. ALDACTONE [Concomitant]
     Indication: ASCITES
     Route: 048
  6. ASPARA [Concomitant]
  7. PENTASA [Concomitant]

REACTIONS (1)
  - HYPOKALAEMIA [None]
